FAERS Safety Report 26072864 (Version 3)
Quarter: 2025Q4

REPORT INFORMATION
  Report Type: Report from Study
  Country: TW (occurrence: TW)
  Receive Date: 20251121
  Receipt Date: 20251203
  Transmission Date: 20260118
  Serious: Yes (Death, Hospitalization)
  Sender: ABBVIE
  Company Number: TW-ABBVIE-6554110

PATIENT
  Age: 43 Year
  Sex: Female
  Weight: 78 kg

DRUGS (2)
  1. SKYRIZI [Suspect]
     Active Substance: RISANKIZUMAB-RZAA
     Indication: Psoriatic arthropathy
     Route: 058
     Dates: start: 20250908, end: 20251006
  2. RINVOQ [Suspect]
     Active Substance: UPADACITINIB
     Indication: Psoriatic arthropathy
     Dosage: MODIFIED-RELEASE TABLET
     Route: 048
     Dates: start: 20250623, end: 20250907

REACTIONS (6)
  - Septic shock [Fatal]
  - Psoriasis [Unknown]
  - Pain of skin [Not Recovered/Not Resolved]
  - Pruritus [Not Recovered/Not Resolved]
  - Herpes simplex test positive [Unknown]
  - Skin disorder [Unknown]

NARRATIVE: CASE EVENT DATE: 20250101
